FAERS Safety Report 6512512-5 (Version None)
Quarter: 2009Q4

REPORT INFORMATION
  Report Type: 
  Country: None (occurrence: None)
  Receive Date: 20091222
  Receipt Date: 20091215
  Transmission Date: 20100525
  Serious: Yes (Other)
  Sender: FDA-Public Use
  Company Number: US-AMGEN-QUU380638

PATIENT
  Sex: Female

DRUGS (2)
  1. ENBREL [Suspect]
     Indication: PSORIASIS
     Route: 058
     Dates: start: 20031001
  2. SORIATANE [Concomitant]
     Route: 048

REACTIONS (3)
  - BREAST CANCER [None]
  - MALIGNANT MELANOMA [None]
  - THYROID NEOPLASM [None]
